FAERS Safety Report 4618199-0 (Version None)
Quarter: 2005Q1

REPORT INFORMATION
  Report Type: 
  Country: None (occurrence: None)
  Receive Date: 20050322
  Receipt Date: 20050315
  Transmission Date: 20050727
  Serious: Yes (Hospitalization)
  Sender: FDA-Public Use
  Company Number: 2005045562

PATIENT
  Age: 63 Year
  Sex: Male

DRUGS (4)
  1. TAHOR (ATORVASTATIN) [Suspect]
     Indication: MYOCARDIAL INFARCTION
     Dosage: 40 MG
     Dates: end: 20050312
  2. CLOPIDOGREL BISULFATE [Concomitant]
  3. ACETYLSALICYLIC ACID SRT [Concomitant]
  4. DRUG, UNSPECIFIED (DRUG, UNSPECIFIED) [Concomitant]

REACTIONS (2)
  - ABDOMINAL PAIN UPPER [None]
  - HEPATITIS [None]
